FAERS Safety Report 24164013 (Version 2)
Quarter: 2024Q3

REPORT INFORMATION
  Report Type: Spontaneous
  Country: ES (occurrence: ES)
  Receive Date: 20240801
  Receipt Date: 20240816
  Transmission Date: 20241017
  Serious: Yes (Other)
  Sender: TEVA
  Company Number: ES-TEVA-VS-3226100

PATIENT
  Age: 47 Year
  Sex: Female

DRUGS (16)
  1. EPIRUBICIN [Suspect]
     Active Substance: EPIRUBICIN
     Indication: Endometrial stromal sarcoma
     Dosage: 6 CYCLES
     Route: 065
     Dates: end: 201612
  2. EPIRUBICIN [Suspect]
     Active Substance: EPIRUBICIN
     Indication: Endometrial stromal sarcoma
     Dosage: RECEIVED 3 CYCLES; 5TH LINE
     Route: 065
  3. TRABECTEDIN [Suspect]
     Active Substance: TRABECTEDIN
     Indication: Endometrial stromal sarcoma
     Dosage: IV TRABECTEDIN INFUSION 1.5?MG/M2 GIVEN AS A 24?HOUR
     Route: 050
     Dates: start: 202107
  4. TRABECTEDIN [Suspect]
     Active Substance: TRABECTEDIN
     Indication: Endometrial stromal sarcoma
     Dosage: FOURTH LINE; FOR 19 CYCLES
     Route: 065
  5. GEMCITABINE [Suspect]
     Active Substance: GEMCITABINE
     Indication: Endometrial stromal sarcoma
     Dosage: THIRD LINE
     Route: 065
     Dates: start: 201711
  6. GEMCITABINE [Suspect]
     Active Substance: GEMCITABINE
     Indication: Endometrial stromal sarcoma
     Dosage: SEVENTH LINE; BIWEEKLY;  SIX CYCLES
     Route: 065
  7. DOCETAXEL [Suspect]
     Active Substance: DOCETAXEL\DOCETAXEL ANHYDROUS
     Indication: Endometrial stromal sarcoma
     Dosage: THIRD LINE
     Route: 065
     Dates: start: 201711
  8. DEXRAZOXANE [Suspect]
     Active Substance: DEXRAZOXANE
     Indication: Endometrial stromal sarcoma
     Dosage: FIFTH LINE; RECEIVED 3?CYCLES
     Route: 065
  9. ERDAFITINIB [Suspect]
     Active Substance: ERDAFITINIB
     Indication: Endometrial stromal sarcoma
     Dosage: EIGHTH LINE
     Route: 065
  10. DEXAMETHASONE [Concomitant]
     Active Substance: DEXAMETHASONE
     Indication: Premedication
     Route: 065
  11. OLARATUMAB [Suspect]
     Active Substance: OLARATUMAB
     Indication: Endometrial stromal sarcoma
     Dosage: THIRD LINE
     Route: 065
     Dates: start: 201711
  12. PAZOPANIB [Suspect]
     Active Substance: PAZOPANIB
     Indication: Endometrial stromal sarcoma
     Route: 048
  13. IFOSFAMIDE [Suspect]
     Active Substance: IFOSFAMIDE
     Indication: Endometrial stromal sarcoma
     Dosage: 6 CYCLES
     Route: 065
     Dates: end: 201612
  14. IFOSFAMIDE [Suspect]
     Active Substance: IFOSFAMIDE
     Indication: Endometrial stromal sarcoma
     Dosage: 3 CYCLES; 5TH LINE TREATMENT
     Route: 065
  15. IFOSFAMIDE [Suspect]
     Active Substance: IFOSFAMIDE
     Indication: Endometrial stromal sarcoma
     Dosage: HIGH DOSES; SIXTH LINE FOR 1 YEAR (FROM JULY 2019 UNTIL JULY 2020)
     Route: 065
     Dates: start: 201907, end: 202007
  16. DACARBAZINE [Suspect]
     Active Substance: DACARBAZINE
     Indication: Endometrial stromal sarcoma
     Dosage: BIWEEKLY; SEVENTH LINE; SIX CYCLES
     Route: 065

REACTIONS (4)
  - Nail toxicity [Unknown]
  - Asthenia [Unknown]
  - Off label use [Unknown]
  - Drug ineffective [Unknown]
